FAERS Safety Report 5478765-X (Version None)
Quarter: 2007Q4

REPORT INFORMATION
  Report Type: 
  Country: None (occurrence: None)
  Receive Date: 20071005
  Receipt Date: 20070928
  Transmission Date: 20080405
  Serious: Yes (Hospitalization)
  Sender: FDA-Public Use
  Company Number: US-MERCK-0709USA02259

PATIENT

DRUGS (2)
  1. ZETIA [Suspect]
     Indication: BLOOD CHOLESTEROL
     Route: 048
  2. LIPITOR [Suspect]
     Route: 065

REACTIONS (1)
  - RENAL FAILURE ACUTE [None]
